FAERS Safety Report 8083734-X (Version None)
Quarter: 2012Q1

REPORT INFORMATION
  Report Type: 
  Country: None (occurrence: None)
  Receive Date: 20120127
  Receipt Date: 20110202
  Transmission Date: 20120608
  Serious: No
  Sender: FDA-Public Use
  Company Number: US-ABBOTT-11P-163-0700153-00

PATIENT
  Sex: Female
  Weight: 65.83 kg

DRUGS (13)
  1. HUMIRA [Suspect]
  2. PREDNISONE TAB [Concomitant]
  3. HUMIRA [Suspect]
     Indication: PSORIATIC ARTHROPATHY
     Dosage: HUMIRA PEN
     Dates: start: 20101201
  4. METHOTREXATE [Concomitant]
     Indication: PRODUCT USED FOR UNKNOWN INDICATION
  5. OSCAL WITH VITAMIN D [Concomitant]
     Indication: PROPHYLAXIS
  6. ADVAIR DISKUS 100/50 [Concomitant]
     Indication: ASTHMA
     Dosage: 250/50 MG
  7. PREDNISONE TAB [Concomitant]
     Indication: PRODUCT USED FOR UNKNOWN INDICATION
  8. FOLIC ACID [Concomitant]
     Indication: PRODUCT USED FOR UNKNOWN INDICATION
  9. CLARITIN [Concomitant]
     Indication: ASTHMA
  10. FLUROXETINE [Concomitant]
     Indication: DEPRESSION
  11. HUMIRA [Suspect]
     Indication: RHEUMATOID ARTHRITIS
     Dates: start: 20070301, end: 20080101
  12. NAPROSYN [Concomitant]
     Indication: PAIN
  13. XANAX [Concomitant]
     Indication: ANXIETY
     Dosage: UP TO TWICE DAILY AS NEEDED

REACTIONS (4)
  - MUSCULOSKELETAL PAIN [None]
  - PAIN [None]
  - OEDEMA PERIPHERAL [None]
  - HYPOAESTHESIA [None]
